FAERS Safety Report 18961175 (Version 2)
Quarter: 2021Q2

REPORT INFORMATION
  Report Type: Spontaneous
  Country: US (occurrence: US)
  Receive Date: 20210303
  Receipt Date: 20210408
  Transmission Date: 20210717
  Serious: Yes (Other)
  Sender: FDA-Public Use
  Company Number: US-LUPIN PHARMACEUTICALS INC.-2021-02539

PATIENT
  Age: 5 Decade
  Sex: Female

DRUGS (4)
  1. NARATRIPTAN [Suspect]
     Active Substance: NARATRIPTAN HYDROCHLORIDE
     Dosage: 2.5 MILLIGRAM
     Route: 065
  2. METHYLPREDNISOLONE. [Suspect]
     Active Substance: METHYLPREDNISOLONE
     Indication: PROPHYLAXIS
     Dosage: 1 GRAM, QD
     Route: 042
  3. NARATRIPTAN [Suspect]
     Active Substance: NARATRIPTAN HYDROCHLORIDE
     Dosage: 2.5 MILLIGRAM, TOOK ANOTHER DOSE
     Route: 065
  4. NARATRIPTAN [Suspect]
     Active Substance: NARATRIPTAN HYDROCHLORIDE
     Indication: MIGRAINE
     Dosage: 5 MILLIGRAM, TOOK TWICE THE AMOUNT OF HER PRESCRIBED DOSAGE
     Route: 065

REACTIONS (5)
  - Therapy non-responder [Unknown]
  - Chest pain [Recovered/Resolved]
  - Intentional overdose [Recovered/Resolved]
  - Urinary retention [Recovered/Resolved]
  - Spinal cord infarction [Recovered/Resolved]
